FAERS Safety Report 13771470 (Version 1)
Quarter: 2017Q3

REPORT INFORMATION
  Report Type: Spontaneous
  Country: GB (occurrence: GB)
  Receive Date: 20170720
  Receipt Date: 20170720
  Transmission Date: 20171127
  Serious: Yes (Life-Threatening, Disabling, Other)
  Sender: FDA-Public Use
  Company Number: GB-TORRENT-00003934

PATIENT
  Age: 73 Year
  Sex: Female

DRUGS (4)
  1. FONDAPARINUX [Concomitant]
     Active Substance: FONDAPARINUX
  2. CLOPIDOGREL [Suspect]
     Active Substance: CLOPIDOGREL BISULFATE
  3. FUROSEMIDE. [Concomitant]
     Active Substance: FUROSEMIDE
  4. ACETYLSALICYLIC ACID [Suspect]
     Active Substance: ASPIRIN

REACTIONS (2)
  - Extradural haematoma [Not Recovered/Not Resolved]
  - Spinal cord compression [Not Recovered/Not Resolved]
